FAERS Safety Report 8757951 (Version 1)
Quarter: 2012Q4

REPORT INFORMATION
  Report Type: 
  Country: US (occurrence: US)
  Receive Date: 20120828
  Receipt Date: 20120828
  Transmission Date: 20130627
  Serious: No
  Sender: FDA-Public Use
  Company Number: US-PFIZER INC-2012208475

PATIENT
  Age: 82 Year
  Sex: Female
  Weight: 58.96 kg

DRUGS (4)
  1. AMLODIPINE BESILATE [Suspect]
     Indication: HYPERTENSION
     Dosage: UNK
     Route: 048
  2. ATENOLOL [Concomitant]
     Indication: HYPERTENSION
     Dosage: 25 mg, daily
  3. NORVASC [Concomitant]
     Indication: HYPERTENSION
     Dosage: 5 mg, daily
     Route: 048
  4. POTASSIUM CHLORIDE [Concomitant]
     Dosage: 20 mEq (2 tablets of potassium chloride 10 mEq), daily
     Route: 048

REACTIONS (2)
  - Drug ineffective [Recovered/Resolved]
  - Dizziness [Recovered/Resolved]
